FAERS Safety Report 5585816-0 (Version None)
Quarter: 2007Q4

REPORT INFORMATION
  Report Type: 
  Country: None (occurrence: None)
  Receive Date: 20071205
  Receipt Date: 20061219
  Transmission Date: 20080405
  Serious: Yes (Other)
  Sender: FDA-Public Use
  Company Number: HQWYE670120DEC06

PATIENT
  Age: 39 Year
  Sex: Male
  Weight: 90.8 kg

DRUGS (2)
  1. EFFEXOR XR [Suspect]
     Indication: DEPRESSION
     Dosage: 225 MG 1X PER 1 DAY, ORAL ; 75 MG 1X PER 1 DAY, ORAL
     Route: 048
     Dates: start: 20050101, end: 20061001
  2. EFFEXOR XR [Suspect]
     Indication: DEPRESSION
     Dosage: 225 MG 1X PER 1 DAY, ORAL ; 75 MG 1X PER 1 DAY, ORAL
     Route: 048
     Dates: start: 20061001

REACTIONS (2)
  - DRUG EFFECT DECREASED [None]
  - SUICIDAL IDEATION [None]
